FAERS Safety Report 20020291 (Version 4)
Quarter: 2025Q1

REPORT INFORMATION
  Report Type: Spontaneous
  Country: US (occurrence: US)
  Receive Date: 20211101
  Receipt Date: 20250225
  Transmission Date: 20250408
  Serious: No
  Sender: BRISTOL-MYERS SQUIBB COMPANY
  Company Number: US-BRISTOL-MYERS SQUIBB COMPANY-BMS-2021-114666

PATIENT
  Age: 54 Year
  Sex: Female
  Weight: 51.255 kg

DRUGS (1)
  1. ABATACEPT [Suspect]
     Active Substance: ABATACEPT
     Indication: Rheumatoid arthritis
     Dosage: 125 MILLIGRAM, QWK
     Route: 058
     Dates: start: 201701

REACTIONS (3)
  - Joint swelling [Unknown]
  - Arthralgia [Unknown]
  - Product packaging quantity issue [Unknown]
